FAERS Safety Report 23902763 (Version 5)
Quarter: 2025Q1

REPORT INFORMATION
  Report Type: Spontaneous
  Country: US (occurrence: US)
  Receive Date: 20240527
  Receipt Date: 20250310
  Transmission Date: 20250409
  Serious: Yes (Hospitalization, Disabling, Other)
  Sender: JOHNSON AND JOHNSON
  Company Number: US-JNJFOC-20240559914

PATIENT
  Age: 62 Year
  Sex: Female

DRUGS (2)
  1. OPSUMIT [Suspect]
     Active Substance: MACITENTAN
     Indication: Product used for unknown indication
     Route: 048
     Dates: start: 20240515
  2. FENTANYL [Concomitant]
     Active Substance: FENTANYL

REACTIONS (9)
  - Heart rate abnormal [Unknown]
  - Pulmonary hypertension [Unknown]
  - Cardiac failure congestive [Unknown]
  - Scleroderma [Unknown]
  - Pulmonary fibrosis [Unknown]
  - Walking disability [Not Recovered/Not Resolved]
  - Illness [Unknown]
  - Hospice care [Unknown]
  - Withdrawal syndrome [Unknown]
